FAERS Safety Report 22244557 (Version 1)
Quarter: 2023Q2

REPORT INFORMATION
  Report Type: Spontaneous
  Country: US (occurrence: US)
  Receive Date: 20230424
  Receipt Date: 20230424
  Transmission Date: 20230722
  Serious: Yes (Hospitalization, Other)
  Sender: FDA-Public Use
  Company Number: US-BRISTOL-MYERS SQUIBB COMPANY-2023-055103

PATIENT
  Age: 80 Year
  Sex: Male
  Weight: 73.4 kg

DRUGS (1)
  1. ELIQUIS [Suspect]
     Active Substance: APIXABAN
     Indication: Cerebrovascular accident prophylaxis
     Dosage: FREQ : 1 TABLET IN AM AND 1 IN PM
     Route: 048
     Dates: start: 202212

REACTIONS (2)
  - Colon cancer [Recovering/Resolving]
  - Spinal deformity [Unknown]

NARRATIVE: CASE EVENT DATE: 20230325
